FAERS Safety Report 7388767-4 (Version None)
Quarter: 2011Q2

REPORT INFORMATION
  Report Type: 
  Country: None (occurrence: None)
  Receive Date: 20110401
  Receipt Date: 20110323
  Transmission Date: 20111010
  Serious: Yes (Other)
  Sender: FDA-Public Use
  Company Number: NL-AMGEN-NLDSP2011014969

PATIENT
  Age: 67 Year
  Sex: Female
  Weight: 63 kg

DRUGS (7)
  1. ENBREL [Suspect]
     Indication: RHEUMATOID ARTHRITIS
     Dosage: 50 MG, WEEKLY
     Dates: start: 20101223, end: 20110209
  2. ENBREL [Suspect]
     Dosage: 50 MG, WEEKLY
     Dates: start: 20110215
  3. METHOTREXATE [Concomitant]
  4. VITAMIN A [Concomitant]
     Indication: OSTEOARTHRITIS
     Dosage: 500 MG, UNK
     Route: 048
     Dates: start: 20101101
  5. BISOPROLOL [Concomitant]
     Indication: AORTIC VALVE STENOSIS
     Dosage: 2.5 MG, UNK
     Route: 048
     Dates: start: 20080101
  6. PAROXETINE HCL [Concomitant]
     Indication: DEPRESSION
     Dosage: 20 MG, UNK
     Route: 048
     Dates: start: 20100401
  7. COAPROVEL [Concomitant]
     Indication: HYPERTENSION
     Dosage: 300 MG, UNK
     Route: 048
     Dates: start: 20080101

REACTIONS (5)
  - CARPAL TUNNEL SYNDROME [None]
  - OSTEITIS [None]
  - SINUSITIS [None]
  - RHEUMATOID ARTHRITIS [None]
  - LARYNGITIS [None]
